FAERS Safety Report 7503255-X (Version None)
Quarter: 2011Q2

REPORT INFORMATION
  Report Type: 
  Country: None (occurrence: None)
  Receive Date: 20110525
  Receipt Date: 20110103
  Transmission Date: 20111010
  Serious: No
  Sender: FDA-Public Use
  Company Number: A0902499A

PATIENT
  Age: 49 Year
  Sex: Female

DRUGS (3)
  1. BACTROBAN [Suspect]
     Indication: SINUS DISORDER
     Dosage: 1APP PER DAY
     Route: 045
     Dates: start: 20100101, end: 20100701
  2. PROPRANOLOL [Concomitant]
  3. THYROID MEDICATION [Concomitant]

REACTIONS (3)
  - EPISTAXIS [None]
  - PRURITUS [None]
  - BURNING SENSATION [None]
